FAERS Safety Report 15366864 (Version 1)
Quarter: 2018Q3

REPORT INFORMATION
  Report Type: Spontaneous
  Country: ZA (occurrence: ZA)
  Receive Date: 20180910
  Receipt Date: 20180910
  Transmission Date: 20181010
  Serious: Yes (Other)
  Sender: FDA-Public Use
  Company Number: ZA-PFIZER INC-2018361425

PATIENT
  Age: 73 Year
  Sex: Male

DRUGS (9)
  1. BAYER ASPIRIN CARDIO [Suspect]
     Active Substance: ASPIRIN
     Dosage: 100 MG, UNK
  2. PLAGROL [Suspect]
     Active Substance: CLOPIDOGREL BISULFATE
     Dosage: 75 MG, UNK
  3. GLUCOPHAGE XR [Suspect]
     Active Substance: METFORMIN HYDROCHLORIDE
     Dosage: 500 MG, UNK
  4. BILOCOR [Suspect]
     Active Substance: BISOPROLOL FUMARATE
     Dosage: 5 MG, UNK
  5. PURICOS [Suspect]
     Active Substance: ALLOPURINOL
     Dosage: 300 MG, UNK
  6. CARBILEV [Suspect]
     Active Substance: CARBIDOPA\LEVODOPA
     Dosage: 25/100 MG, UNK
  7. ASPAVOR [Suspect]
     Active Substance: ATORVASTATIN
     Dosage: 80 MG, UNK
  8. CIPLASYL [Suspect]
     Active Substance: PERINDOPRIL ERBUMINE
     Dosage: 4 MG, UNK
  9. DOPAQUEL [Suspect]
     Active Substance: QUETIAPINE
     Dosage: 25 MG, UNK

REACTIONS (1)
  - Dementia Alzheimer^s type [Unknown]
